FAERS Safety Report 10973443 (Version 1)
Quarter: 2015Q1

REPORT INFORMATION
  Report Type: Spontaneous
  Country: US (occurrence: None)
  Receive Date: 20150331
  Receipt Date: 20150331
  Transmission Date: 20150721
  Serious: Yes (Disabling)
  Sender: FDA-Public Use
  Company Number: None

PATIENT
  Age: 47 Year
  Sex: Female
  Weight: 63.5 kg

DRUGS (3)
  1. DIAZEPAM 5 MG TABLETTEN [Suspect]
     Active Substance: DIAZEPAM
     Indication: TREMOR
     Dosage: 1 PILL
     Route: 048
     Dates: start: 19970415, end: 20120912
  2. FLINTSTONES CHEWABLES [Concomitant]
  3. PRIMIDONE. [Concomitant]
     Active Substance: PRIMIDONE

REACTIONS (2)
  - Quality of life decreased [None]
  - Dementia Alzheimer^s type [None]

NARRATIVE: CASE EVENT DATE: 20120912
